FAERS Safety Report 14904786 (Version 1)
Quarter: 2018Q2

REPORT INFORMATION
  Report Type: Spontaneous
  Country: US (occurrence: US)
  Receive Date: 20180517
  Receipt Date: 20180517
  Transmission Date: 20180711
  Serious: No
  Sender: FDA-Public Use
  Company Number: US-SA-2017SA205741

PATIENT
  Age: 61 Year
  Sex: Male

DRUGS (1)
  1. LANTUS [Suspect]
     Active Substance: INSULIN GLARGINE
     Indication: TYPE 2 DIABETES MELLITUS
     Dosage: DOSE- 45 UNITS AM, 0-10 U IN PM
     Route: 051
     Dates: start: 2003

REACTIONS (2)
  - Blood glucose increased [Unknown]
  - Product use issue [Unknown]

NARRATIVE: CASE EVENT DATE: 2003
